FAERS Safety Report 23765075 (Version 1)
Quarter: 2024Q2

REPORT INFORMATION
  Report Type: Spontaneous
  Country: IT (occurrence: IT)
  Receive Date: 20240420
  Receipt Date: 20240420
  Transmission Date: 20240716
  Serious: Yes (Life-Threatening)
  Sender: FDA-Public Use
  Company Number: IT-AUROBINDO-AUR-APL-2013-09669

PATIENT
  Age: 21 Year
  Sex: Male

DRUGS (3)
  1. MONTELUKAST SODIUM [Suspect]
     Active Substance: MONTELUKAST SODIUM
     Indication: Asthma
     Dosage: 10 MG,ONCE A DAY,
     Route: 048
     Dates: start: 20131006
  2. RUPAFIN [Suspect]
     Active Substance: RUPATADINE FUMARATE
     Indication: Asthma
     Dosage: 10 MG,ONCE A DAY
     Route: 048
     Dates: start: 20131006, end: 20131107
  3. FLUTICASONE PROPIONATE\SALMETEROL XINAFOATE [Suspect]
     Active Substance: FLUTICASONE PROPIONATE\SALMETEROL XINAFOATE
     Indication: Asthma
     Dosage: 2 DOSAGE FORM, ONCE A DAY
     Dates: start: 20131006, end: 20131107

REACTIONS (2)
  - Laryngospasm [Recovered/Resolved]
  - Drug ineffective [Recovered/Resolved]

NARRATIVE: CASE EVENT DATE: 20131107
